FAERS Safety Report 17307819 (Version 1)
Quarter: 2020Q1

REPORT INFORMATION
  Report Type: Spontaneous
  Country: FR (occurrence: FR)
  Receive Date: 20200123
  Receipt Date: 20200123
  Transmission Date: 20200409
  Serious: Yes (Life-Threatening)
  Sender: FDA-Public Use
  Company Number: FR-PFIZER INC-2020029054

PATIENT
  Age: 15 Year
  Sex: Male
  Weight: 58 kg

DRUGS (3)
  1. DEPAKINE [VALPROIC ACID] [Concomitant]
     Active Substance: VALPROIC ACID
     Indication: POST STROKE EPILEPSY
     Dosage: 1500 MG, 1X/DAY
     Route: 048
  2. PRODILANTIN [Suspect]
     Active Substance: FOSPHENYTOIN SODIUM
     Indication: STATUS EPILEPTICUS
     Dosage: 900 MG, SINGLE
     Route: 042
     Dates: start: 20191210, end: 20191210
  3. KEPPRA [Concomitant]
     Active Substance: LEVETIRACETAM
     Indication: POST STROKE EPILEPSY
     Dosage: 2 G, 1X/DAY
     Route: 048

REACTIONS (2)
  - Ventricular tachycardia [Not Recovered/Not Resolved]
  - Cardiogenic shock [Not Recovered/Not Resolved]

NARRATIVE: CASE EVENT DATE: 20191210
